FAERS Safety Report 13560986 (Version 1)
Quarter: 2017Q2

REPORT INFORMATION
  Report Type: Spontaneous
  Country: IN (occurrence: US)
  Receive Date: 20170518
  Receipt Date: 20170518
  Transmission Date: 20170830
  Serious: Yes (Life-Threatening)
  Sender: FDA-Public Use
  Company Number: IN-FRESENIUS KABI-FK201703992

PATIENT
  Age: 75 Year
  Sex: Female

DRUGS (1)
  1. AMIODARONE HCL (MANUFACTURER UNKNOWN) [Suspect]
     Active Substance: AMIODARONE HYDROCHLORIDE
     Indication: ATRIAL FIBRILLATION

REACTIONS (3)
  - Pulmonary fibrosis [Recovered/Resolved with Sequelae]
  - Acute respiratory distress syndrome [Recovered/Resolved with Sequelae]
  - Product use in unapproved indication [Recovered/Resolved with Sequelae]
